FAERS Safety Report 4686662-2 (Version None)
Quarter: 2005Q2

REPORT INFORMATION
  Report Type: 
  Country: None (occurrence: None)
  Receive Date: 20050609
  Receipt Date: 20050114
  Transmission Date: 20051028
  Serious: Yes (Disabling)
  Sender: FDA-Public Use
  Company Number: 2005UW00752

PATIENT
  Age: 699 Month
  Sex: Female
  Weight: 82.7 kg

DRUGS (4)
  1. SEROQUEL [Suspect]
     Route: 048
     Dates: start: 20030823, end: 20030823
  2. SERZONE [Suspect]
     Indication: DEPRESSION
     Dosage: 4-5 YEARS
     Route: 048
     Dates: start: 19990101
  3. PAXIL [Concomitant]
  4. PREMARIN [Concomitant]

REACTIONS (15)
  - ANXIETY DISORDER [None]
  - ASTHENIA [None]
  - BRAIN DAMAGE [None]
  - COGNITIVE DISORDER [None]
  - DIARRHOEA [None]
  - DYSPHASIA [None]
  - DYSSTASIA [None]
  - FATIGUE [None]
  - HEADACHE [None]
  - HYPERSOMNIA [None]
  - LETHARGY [None]
  - MEMORY IMPAIRMENT [None]
  - MYALGIA [None]
  - TREMOR [None]
  - WRONG DRUG ADMINISTERED [None]
